FAERS Safety Report 11807825 (Version 1)
Quarter: 2015Q4

REPORT INFORMATION
  Report Type: Spontaneous
  Country: US (occurrence: US)
  Receive Date: 20151207
  Receipt Date: 20151207
  Transmission Date: 20160305
  Serious: Yes (Other)
  Sender: FDA-Public Use
  Company Number: US-IMPAX LABORATORIES, INC-2015-IPXL-01214

PATIENT
  Age: 35 Year
  Sex: Female

DRUGS (1)
  1. OXYCODONE HYDROCHLORIDE. [Suspect]
     Active Substance: OXYCODONE HYDROCHLORIDE
     Indication: BACK PAIN
     Dosage: UNK
     Route: 065

REACTIONS (7)
  - Respiratory depression [Unknown]
  - Intentional overdose [Unknown]
  - Spinal cord injury [Unknown]
  - Quadriplegia [Recovering/Resolving]
  - Spinal cord infarction [Recovering/Resolving]
  - Respiratory acidosis [Unknown]
  - Brain hypoxia [Unknown]
